FAERS Safety Report 5124405-9 (Version None)
Quarter: 2006Q4

REPORT INFORMATION
  Report Type: 
  Country: None (occurrence: None)
  Receive Date: 20061010
  Receipt Date: 20060927
  Transmission Date: 20070319
  Serious: Yes (Hospitalization)
  Sender: FDA-Public Use
  Company Number: TR-MERCK-0610TUR00001

PATIENT
  Age: 24 Year
  Sex: Female

DRUGS (8)
  1. PRIMAXIN [Suspect]
     Indication: ACUTE FEBRILE NEUTROPHILIC DERMATOSIS
     Route: 065
  2. METHYLPREDNISOLONE [Concomitant]
     Route: 065
  3. VANCOMYCIN HYDROCHLORIDE [Concomitant]
     Route: 065
  4. AMPHOTERICIN B [Concomitant]
     Route: 065
  5. MITOXANTRONE HYDROCHLORIDE [Concomitant]
     Route: 065
  6. CYTARABINE [Concomitant]
     Route: 065
  7. AMIKACIN [Concomitant]
     Indication: FEBRILE NEUTROPENIA
     Route: 065
  8. CEFEPIME [Concomitant]
     Indication: FEBRILE NEUTROPENIA
     Route: 065

REACTIONS (1)
  - ACUTE FEBRILE NEUTROPHILIC DERMATOSIS [None]
